FAERS Safety Report 8481028-1 (Version None)
Quarter: 2012Q2

REPORT INFORMATION
  Report Type: 
  Country: None (occurrence: None)
  Receive Date: 20120615
  Receipt Date: 20120606
  Transmission Date: 20120825
  Serious: Yes (Other)
  Sender: FDA-Public Use
  Company Number: 2012SP030960

PATIENT
  Sex: Female

DRUGS (3)
  1. PEG-INTRON [Suspect]
     Indication: HEPATITIS C
     Dosage: UNK
     Dates: start: 20111219, end: 20120327
  2. VICTRELIS [Suspect]
     Indication: HEPATITIS C
     Dosage: UNK
     Dates: start: 20120116, end: 20120327
  3. RIBAVIRIN [Suspect]
     Indication: HEPATITIS C
     Dosage: UNK
     Dates: start: 20111219, end: 20120327

REACTIONS (29)
  - LIP EXFOLIATION [None]
  - DEPRESSION [None]
  - DEHYDRATION [None]
  - ARTHRITIS [None]
  - DYSPNOEA [None]
  - LIP DRY [None]
  - NAUSEA [None]
  - DRY MOUTH [None]
  - FATIGUE [None]
  - PAIN [None]
  - WEIGHT DECREASED [None]
  - FEAR [None]
  - DYSGEUSIA [None]
  - DIARRHOEA [None]
  - HYPOAESTHESIA [None]
  - PALPITATIONS [None]
  - ANXIETY [None]
  - HYPOAESTHESIA ORAL [None]
  - HYPERHIDROSIS [None]
  - DRUG INEFFECTIVE [None]
  - RED BLOOD CELL COUNT DECREASED [None]
  - SEPSIS [None]
  - HYPOPHAGIA [None]
  - DYSPHAGIA [None]
  - PALLOR [None]
  - OEDEMA PERIPHERAL [None]
  - WHITE BLOOD CELL COUNT DECREASED [None]
  - INSOMNIA [None]
  - NOCTURIA [None]
